FAERS Safety Report 15127454 (Version 1)
Quarter: 2018Q3

REPORT INFORMATION
  Report Type: Spontaneous
  Country: US (occurrence: US)
  Receive Date: 20180710
  Receipt Date: 20180710
  Transmission Date: 20181010
  Serious: No
  Sender: FDA-Public Use
  Company Number: US-TERSERA THERAPEUTICS, LLC-2051679

PATIENT
  Age: 45 Year
  Sex: Female

DRUGS (2)
  1. ZOLADEX [Suspect]
     Active Substance: GOSERELIN ACETATE
     Indication: HORMONE SUPPRESSION THERAPY
     Route: 058
  2. ANASTROZOLE. [Suspect]
     Active Substance: ANASTROZOLE
     Route: 048

REACTIONS (15)
  - Migraine [Not Recovered/Not Resolved]
  - Headache [Unknown]
  - Menstruation irregular [Unknown]
  - Breast mass [Unknown]
  - Haemorrhage [Recovered/Resolved]
  - Limb discomfort [Unknown]
  - Irritability [Unknown]
  - Product use in unapproved indication [Unknown]
  - Photophobia [Unknown]
  - Off label use [Unknown]
  - Therapeutic response unexpected [Unknown]
  - Somnolence [Unknown]
  - Thinking abnormal [Unknown]
  - Muscle spasms [Unknown]
  - Hyperacusis [Unknown]
